FAERS Safety Report 8689957 (Version 2)
Quarter: 2012Q4

REPORT INFORMATION
  Report Type: 
  Country: US (occurrence: US)
  Receive Date: 20120727
  Receipt Date: 20121017
  Transmission Date: 20130627
  Serious: No
  Sender: FDA-Public Use
  Company Number: US-ASTRAZENECA-2012SE16863

PATIENT
  Age: 37 Year
  Sex: Male

DRUGS (9)
  1. SEROQUEL XR [Suspect]
     Indication: PSYCHOTIC BEHAVIOUR
     Dosage: 500 TO 600 MG AT NIGHT
     Route: 048
     Dates: start: 2008
  2. SEROQUEL XR [Suspect]
     Indication: PARANOIA
     Dosage: 500 TO 600 MG AT NIGHT
     Route: 048
     Dates: start: 2008
  3. SEROQUEL XR [Suspect]
     Indication: DEPENDENCE
     Dosage: 500 TO 600 MG AT NIGHT
     Route: 048
     Dates: start: 2008
  4. SEROQUEL XR [Suspect]
     Indication: SCHIZOAFFECTIVE DISORDER
     Dosage: 500 TO 600 MG AT NIGHT
     Route: 048
     Dates: start: 2008
  5. SEROQUEL XR [Suspect]
     Indication: ANXIETY
     Dosage: 500 TO 600 MG AT NIGHT
     Route: 048
     Dates: start: 2008
  6. SEROQUEL XR [Suspect]
     Indication: AFFECTIVE DISORDER
     Dosage: 500 TO 600 MG AT NIGHT
     Route: 048
     Dates: start: 2008
  7. SEROQUEL XR [Suspect]
     Indication: PANIC ATTACK
     Dosage: 500 TO 600 MG AT NIGHT
     Route: 048
     Dates: start: 2008
  8. SEROQUEL XR [Suspect]
     Indication: INSOMNIA
     Dosage: 500 TO 600 MG AT NIGHT
     Route: 048
     Dates: start: 2008
  9. CLONAZEPAM [Concomitant]
     Dosage: 1-2 MG PER DAY

REACTIONS (16)
  - Hypertension [Unknown]
  - Drug intolerance [Unknown]
  - Nausea [Unknown]
  - Chest pain [Unknown]
  - Muscle tightness [Unknown]
  - Pruritus [Unknown]
  - Panic attack [Unknown]
  - Insomnia [Unknown]
  - Anxiety [Unknown]
  - Blood cholesterol increased [Unknown]
  - Dyspnoea [Unknown]
  - Vomiting [Unknown]
  - Weight increased [Unknown]
  - Hypersensitivity [Unknown]
  - Drug ineffective for unapproved indication [Unknown]
  - Off label use [Unknown]
